FAERS Safety Report 5592663-2 (Version None)
Quarter: 2008Q1

REPORT INFORMATION
  Report Type: 
  Country: None (occurrence: None)
  Receive Date: 20080114
  Receipt Date: 20080103
  Transmission Date: 20080703
  Serious: Yes (Hospitalization)
  Sender: FDA-Public Use
  Company Number: JPI-P-002704

PATIENT
  Age: 28 Year
  Sex: Female
  Weight: 73.9363 kg

DRUGS (3)
  1. XYREM [Suspect]
     Indication: NARCOLEPSY
     Dosage: 9 GM (4.5 GM, 2 IN 1 D), ORAL
     Route: 048
     Dates: start: 20071001, end: 20071022
  2. MODAFINIL [Suspect]
     Indication: NARCOLEPSY
     Dosage: 200 MG (200 MG, 1 IN 1 D), ORAL
     Route: 048
     Dates: start: 20070201, end: 20071001
  3. ORAL CONTRACEPTIVES (CONTRACEPTIVES NOS) [Concomitant]

REACTIONS (9)
  - AGITATION [None]
  - INSOMNIA [None]
  - LOGORRHOEA [None]
  - MANIA [None]
  - PARANOIA [None]
  - PSYCHOMOTOR HYPERACTIVITY [None]
  - PSYCHOTIC DISORDER [None]
  - SOMNOLENCE [None]
  - WEIGHT DECREASED [None]
